FAERS Safety Report 7501296-X (Version None)
Quarter: 2011Q2

REPORT INFORMATION
  Report Type: 
  Country: None (occurrence: None)
  Receive Date: 20110524
  Receipt Date: 20110517
  Transmission Date: 20111010
  Serious: Yes (Other)
  Sender: FDA-Public Use
  Company Number: DE-PFIZER INC-2011099367

PATIENT
  Age: 46 Year
  Sex: Female
  Weight: 61 kg

DRUGS (2)
  1. MEDROXYPROGESTERONE ACETATE [Suspect]
     Indication: MIGRAINE
  2. MEDROXYPROGESTERONE ACETATE [Suspect]
     Indication: CONTRACEPTION
     Dosage: 104 MG, UNK
     Route: 058
     Dates: start: 20091030, end: 20101006

REACTIONS (2)
  - INJECTION SITE REACTION [None]
  - INJECTION SITE DISCOLOURATION [None]
